FAERS Safety Report 13587235 (Version 7)
Quarter: 2018Q1

REPORT INFORMATION
  Report Type: Report from Study
  Country: BR (occurrence: BR)
  Receive Date: 20170526
  Receipt Date: 20180312
  Transmission Date: 20180508
  Serious: Yes (Hospitalization, Disabling, Other)
  Sender: FDA-Public Use
  Company Number: BR-SA-2017SA062679

PATIENT
  Age: 48 Year
  Sex: Male
  Weight: 132 kg

DRUGS (4)
  1. SALINE [Concomitant]
     Active Substance: SODIUM CHLORIDE
  2. LEMTRADA [Suspect]
     Active Substance: ALEMTUZUMAB
     Indication: MULTIPLE SCLEROSIS
     Dosage: FREQUENCY: 3 TIMES PER YEAR DURING 3 STRAIGHT DAYS
     Route: 041
     Dates: start: 20170404, end: 20170406
  3. FAMPYRA [Concomitant]
     Active Substance: DALFAMPRIDINE
     Indication: GAIT DISTURBANCE
     Route: 065
     Dates: start: 201704
  4. LEMTRADA [Suspect]
     Active Substance: ALEMTUZUMAB
     Indication: MULTIPLE SCLEROSIS
     Route: 041
     Dates: start: 20160111, end: 20160115

REACTIONS (19)
  - Multiple sclerosis relapse [Recovered/Resolved]
  - Ill-defined disorder [Not Recovered/Not Resolved]
  - Erythema [Recovering/Resolving]
  - Dyspnoea [Unknown]
  - Back pain [Unknown]
  - Drug ineffective [Unknown]
  - Paraesthesia [Recovered/Resolved]
  - Swelling [Unknown]
  - Pain in extremity [Unknown]
  - Product use issue [Not Recovered/Not Resolved]
  - Gait inability [Not Recovered/Not Resolved]
  - Blood pressure increased [Recovered/Resolved]
  - Hypersensitivity [Recovered/Resolved]
  - Pruritus [Recovering/Resolving]
  - Herpes zoster [Unknown]
  - Loss of consciousness [Recovered/Resolved]
  - Movement disorder [Recovered/Resolved]
  - Back pain [Not Recovered/Not Resolved]
  - Urticaria [Unknown]

NARRATIVE: CASE EVENT DATE: 2017
